FAERS Safety Report 8972913 (Version 1)
Quarter: 2012Q4

REPORT INFORMATION
  Report Type: 
  Country: US (occurrence: US)
  Receive Date: 20121218
  Receipt Date: 20121218
  Transmission Date: 20130627
  Serious: No
  Sender: FDA-Public Use
  Company Number: US-BRISTOL-MYERS SQUIBB COMPANY-16961310

PATIENT
  Age: 65 Year
  Sex: Female

DRUGS (5)
  1. ABILIFY [Suspect]
     Indication: MAJOR DEPRESSION
     Dosage: 5 mg for few months,7mg for 10Days
     Dates: end: 20120918
  2. LITHIUM [Concomitant]
     Dosage: low dose
  3. EFFEXOR [Concomitant]
  4. WELLBUTRIN SR [Concomitant]
  5. AMBIEN CR [Concomitant]
     Indication: SLEEP DISORDER

REACTIONS (1)
  - Tremor [Recovering/Resolving]
